FAERS Safety Report 13708642 (Version 2)
Quarter: 2017Q3

REPORT INFORMATION
  Report Type: Report from Study
  Country: US (occurrence: US)
  Receive Date: 20170630
  Receipt Date: 20170717
  Transmission Date: 20171127
  Serious: Yes (Hospitalization)
  Sender: FDA-Public Use
  Company Number: US-ACTELION-A-NJ2017-155884

PATIENT
  Age: 38 Year
  Sex: Female

DRUGS (6)
  1. OPSUMIT [Suspect]
     Active Substance: MACITENTAN
     Indication: PULMONARY ARTERIAL HYPERTENSION
     Dosage: 10 MG, QD
     Route: 048
     Dates: start: 20151019
  2. RAPAMUNE [Concomitant]
     Active Substance: SIROLIMUS
  3. MICAFUNGIN [Concomitant]
     Active Substance: MICAFUNGIN
  4. LAMIVUDINE. [Concomitant]
     Active Substance: LAMIVUDINE
  5. PENICILLIN [Concomitant]
     Active Substance: PENICILLIN
  6. ACYCLOVIR. [Concomitant]
     Active Substance: ACYCLOVIR

REACTIONS (5)
  - Nausea [Unknown]
  - Stem cell transplant [Not Recovered/Not Resolved]
  - Blood calcium decreased [Unknown]
  - Sickle cell anaemia [Not Recovered/Not Resolved]
  - Pain [Unknown]
